FAERS Safety Report 14333630 (Version 1)
Quarter: 2017Q4

REPORT INFORMATION
  Report Type: Spontaneous
  Country: US (occurrence: US)
  Receive Date: 20171228
  Receipt Date: 20171228
  Transmission Date: 20180321
  Serious: Yes (Hospitalization)
  Sender: FDA-Public Use
  Company Number: US-JUBILANT HOLLISTERSTIER LLC-2037925

PATIENT
  Sex: Female

DRUGS (1)
  1. HONEY BEE HYMENOPTERA VENOM MULTIDOSE [Suspect]
     Active Substance: APIS MELLIFERA VENOM
     Indication: ALLERGY TEST
     Route: 023

REACTIONS (1)
  - Hypersensitivity [Unknown]
